FAERS Safety Report 14016849 (Version 2)
Quarter: 2017Q4

REPORT INFORMATION
  Report Type: Spontaneous
  Country: PL (occurrence: PL)
  Receive Date: 20170927
  Receipt Date: 20171026
  Transmission Date: 20180321
  Serious: Yes (Other)
  Sender: FDA-Public Use
  Company Number: PL-SYNTHON BV-NL01PV17_44904

PATIENT
  Age: 74 Year
  Sex: Male

DRUGS (1)
  1. FOKUSIN [Suspect]
     Active Substance: TAMSULOSIN
     Indication: PROSTATIC DISORDER
     Dosage: 1 DF, DAILY
     Route: 048

REACTIONS (3)
  - Drug ineffective [Unknown]
  - Pollakiuria [Unknown]
  - Urinary incontinence [Unknown]
